FAERS Safety Report 6121701-3 (Version None)
Quarter: 2009Q1

REPORT INFORMATION
  Report Type: 
  Country: None (occurrence: None)
  Receive Date: 20090313
  Receipt Date: 20090302
  Transmission Date: 20090719
  Serious: Yes (Hospitalization, Other)
  Sender: FDA-Public Use
  Company Number: 1-17716015

PATIENT
  Sex: Male
  Weight: 102.0593 kg

DRUGS (16)
  1. AMIODARONE HCL [Suspect]
     Indication: ARRHYTHMIA
     Dosage: 800 MG TWICE DAILY, ORAL
     Route: 048
     Dates: start: 20081208
  2. DIGOXIN [Suspect]
     Dates: end: 20081201
  3. ACTOS [Concomitant]
  4. LISINOPRIL [Concomitant]
  5. PROTONIX [Concomitant]
  6. TOPROL-XL [Concomitant]
  7. COUMADIN [Concomitant]
  8. LOVAZA [Concomitant]
  9. INSULIN INJECTION (70/30 HUMALOG, NPH) [Concomitant]
  10. IRON [Concomitant]
  11. ASPIRIN [Concomitant]
  12. CRESTOR [Concomitant]
  13. ZETIA [Concomitant]
  14. UNSPECIFIED PROSTATE MEDICATIONS [Concomitant]
  15. DIGOXIN [Concomitant]
  16. AMIODARONE HCL [Concomitant]

REACTIONS (7)
  - ARRHYTHMIA [None]
  - BLOOD GLUCOSE DECREASED [None]
  - BLOOD GLUCOSE INCREASED [None]
  - BLOOD PRESSURE DECREASED [None]
  - DIZZINESS [None]
  - MEDICATION ERROR [None]
  - WEIGHT INCREASED [None]
